FAERS Safety Report 4680799-X (Version None)
Quarter: 2005Q2

REPORT INFORMATION
  Report Type: 
  Country: None (occurrence: None)
  Receive Date: 20050601
  Receipt Date: 20050601
  Transmission Date: 20051028
  Serious: Yes (Hospitalization)
  Sender: FDA-Public Use
  Company Number: None

PATIENT
  Sex: Male

DRUGS (8)
  1. FLUDARABINE [Suspect]
     Indication: STEM CELL TRANSPLANT
     Dosage: 60MG QD IV
     Route: 042
     Dates: start: 20040908, end: 20040912
  2. MELPHALAN [Suspect]
     Dosage: 275MG   IV
     Route: 042
     Dates: start: 20040913
  3. CAMPATH [Suspect]
     Dosage: 20MG QD IV
     Route: 042
     Dates: start: 20040908, end: 20040912
  4. AVELOX [Concomitant]
  5. SYNTHROID [Concomitant]
  6. POTASSIUM CHLORIDE [Concomitant]
  7. AMBISON [Concomitant]
  8. CIDOFAVIR [Concomitant]

REACTIONS (7)
  - BACTERIAL INFECTION [None]
  - BRONCHOALVEOLAR LAVAGE ABNORMAL [None]
  - COMPUTERISED TOMOGRAM ABNORMAL [None]
  - CONDITION AGGRAVATED [None]
  - GRAFT VERSUS HOST DISEASE [None]
  - INFLUENZA [None]
  - PNEUMONIA FUNGAL [None]
